FAERS Safety Report 8582310-X (Version None)
Quarter: 2012Q3

REPORT INFORMATION
  Report Type: 
  Country: None (occurrence: None)
  Receive Date: 20120809
  Receipt Date: 20120806
  Transmission Date: 20120928
  Serious: Yes (Death)
  Sender: FDA-Public Use
  Company Number: GB-ROCHE-1079518

PATIENT
  Sex: Male
  Weight: 67.9 kg

DRUGS (4)
  1. LUCENTIS [Suspect]
     Route: 050
     Dates: start: 20110601, end: 20110601
  2. LUCENTIS [Suspect]
     Indication: PRODUCT USED FOR UNKNOWN INDICATION
     Route: 050
     Dates: start: 20100301
  3. PROSTEP [Concomitant]
     Route: 058
  4. BUTRANS [Concomitant]

REACTIONS (1)
  - PROSTATE CANCER [None]
